FAERS Safety Report 5846849-X (Version None)
Quarter: 2008Q3

REPORT INFORMATION
  Report Type: 
  Country: None (occurrence: None)
  Receive Date: 20080815
  Receipt Date: 20080807
  Transmission Date: 20090109
  Serious: Yes (Other)
  Sender: FDA-Public Use
  Company Number: PHBS2008NL05364

PATIENT
  Age: 13 Year
  Sex: Female
  Weight: 33 kg

DRUGS (2)
  1. BACLOFEN [Suspect]
     Indication: CEREBRAL PALSY
     Dosage: 50 UG/DAY
     Route: 037
  2. BACLOFEN [Suspect]
     Indication: MUSCLE SPASTICITY
     Dosage: 104 UG/DAY
     Route: 037

REACTIONS (1)
  - CONVULSION [None]
